FAERS Safety Report 6307378-2 (Version None)
Quarter: 2009Q3

REPORT INFORMATION
  Report Type: 
  Country: None (occurrence: None)
  Receive Date: 20090807
  Receipt Date: 20080708
  Transmission Date: 20100115
  Serious: Yes (Other)
  Sender: FDA-Public Use
  Company Number: US-JNJFOC-2008702241

PATIENT
  Age: 7 Month
  Sex: Female
  Weight: 9.9791 kg

DRUGS (3)
  1. IBUPROFEN [Suspect]
     Indication: GASTROENTERITIS VIRAL
     Dosage: 1 DOSE(S), 1 IN 6 HOUR, ORAL
     Route: 048
     Dates: start: 20080702, end: 20080706
  2. IBUPROFEN [Suspect]
     Indication: PYREXIA
     Dosage: 1 DOSE(S), 1 IN 6 HOUR, ORAL
     Route: 048
     Dates: start: 20080702, end: 20080706
  3. IBUPROFEN [Suspect]
     Indication: TEETHING
     Dosage: 1 DOSE(S), 1 IN 6 HOUR, ORAL
     Route: 048
     Dates: start: 20080702, end: 20080706

REACTIONS (1)
  - HAEMATOCHEZIA [None]
